FAERS Safety Report 17956458 (Version 1)
Quarter: 2020Q2

REPORT INFORMATION
  Report Type: Spontaneous
  Country: US (occurrence: US)
  Receive Date: 20200627
  Receipt Date: 20200627
  Transmission Date: 20200714
  Serious: Yes (Disabling)
  Sender: FDA-Public Use
  Company Number: None

PATIENT
  Age: 49 Year
  Sex: Female
  Weight: 58.05 kg

DRUGS (12)
  1. LITHIUM. [Concomitant]
     Active Substance: LITHIUM
  2. VITAMINS [Concomitant]
     Active Substance: VITAMINS
  3. COGENTIN [Concomitant]
     Active Substance: BENZTROPINE MESYLATE
  4. CALCIUM [Concomitant]
     Active Substance: CALCIUM
  5. ESTER C [Concomitant]
  6. WELLBUTRIN [Concomitant]
     Active Substance: BUPROPION HYDROCHLORIDE
  7. OMEGA 3,6,9 [Concomitant]
  8. LAMOTRIGINE. [Suspect]
     Active Substance: LAMOTRIGINE
     Indication: BIPOLAR DISORDER
     Dosage: ?          QUANTITY:1 TABLET(S);?
     Route: 048
     Dates: start: 20191119, end: 20200626
  9. METHYLFOLATE [Concomitant]
     Active Substance: LEVOMEFOLATE CALCIUM
  10. VITAMIN D [Concomitant]
     Active Substance: VITAMIN D NOS
  11. RISPERIDAL [Concomitant]
     Active Substance: RISPERIDONE
  12. VITAMIN C [Concomitant]
     Active Substance: ASCORBIC ACID

REACTIONS (23)
  - Malaise [None]
  - Diplopia [None]
  - Nystagmus [None]
  - Fall [None]
  - Arthralgia [None]
  - Pain in extremity [None]
  - Hyporeflexia [None]
  - Amnesia [None]
  - Clumsiness [None]
  - Dizziness [None]
  - Gait disturbance [None]
  - Headache [None]
  - General physical health deterioration [None]
  - Dry mouth [None]
  - Dysphagia [None]
  - Musculoskeletal stiffness [None]
  - Tremor [None]
  - Visual acuity reduced [None]
  - Vision blurred [None]
  - Balance disorder [None]
  - Migraine [None]
  - Bone pain [None]
  - Impaired quality of life [None]

NARRATIVE: CASE EVENT DATE: 20200101
